FAERS Safety Report 15481702 (Version 1)
Quarter: 2018Q4

REPORT INFORMATION
  Report Type: Spontaneous
  Country: DE (occurrence: DE)
  Receive Date: 20181010
  Receipt Date: 20181010
  Transmission Date: 20190205
  Serious: Yes (Hospitalization, Other)
  Sender: FDA-Public Use
  Company Number: DE-MACLEODS PHARMACEUTICALS US LTD-MAC2018017331

PATIENT

DRUGS (6)
  1. CIPROFLOXACIN. [Concomitant]
     Active Substance: CIPROFLOXACIN
     Indication: PRODUCT USED FOR UNKNOWN INDICATION
     Dosage: 1500 MILLIGRAM
     Route: 065
  2. CEFUROXIME. [Concomitant]
     Active Substance: CEFUROXIME
     Indication: URINARY TRACT INFECTION
     Dosage: UNK
     Route: 065
  3. METRONIDAZOLE. [Interacting]
     Active Substance: METRONIDAZOLE
     Indication: GASTROENTERITIS CLOSTRIDIAL
     Dosage: 1200 MILLIGRAM, QD, (IN 400 MG TABLETS)
     Route: 048
  4. RISPERIDONE. [Interacting]
     Active Substance: RISPERIDONE
     Indication: MAJOR DEPRESSION
     Dosage: 4 MILLIGRAM, QD, DOSE REDUCED ON DAY 12
     Route: 065
  5. VANCOMYCIN [Concomitant]
     Active Substance: VANCOMYCIN
     Indication: PRODUCT USED FOR UNKNOWN INDICATION
     Dosage: UNK
     Route: 065
  6. VENLAFAXINE [Suspect]
     Active Substance: VENLAFAXINE HYDROCHLORIDE
     Indication: MAJOR DEPRESSION
     Dosage: 187.5 MILLIGRAM, QD
     Route: 065

REACTIONS (4)
  - Drug level increased [Recovering/Resolving]
  - Orthostatic hypotension [Recovering/Resolving]
  - Drug interaction [Recovering/Resolving]
  - Hyponatraemia [Recovering/Resolving]
